FAERS Safety Report 15173508 (Version 2)
Quarter: 2018Q3

REPORT INFORMATION
  Report Type: Spontaneous
  Country: JP (occurrence: JP)
  Receive Date: 20180720
  Receipt Date: 20180724
  Transmission Date: 20181010
  Serious: Yes (Other)
  Sender: FDA-Public Use
  Company Number: JP-BAYER-2018-132101

PATIENT
  Sex: Male
  Weight: 1.3 kg

DRUGS (2)
  1. BAYASPIRIN 100 MG [Suspect]
     Active Substance: ASPIRIN
     Route: 064
  2. SAIREI?TO [Concomitant]
     Active Substance: UNSPECIFIED INGREDIENT
     Route: 064

REACTIONS (13)
  - Foetal exposure during pregnancy [None]
  - Vasoconstriction [None]
  - Hydrops foetalis [None]
  - Ventricular septal defect [None]
  - Bradycardia foetal [None]
  - Ductus arteriosus stenosis foetal [None]
  - Right ventricular failure [None]
  - Pulmonary hypertension [None]
  - Premature baby [None]
  - Pleural effusion [None]
  - Tricuspid valve incompetence [None]
  - Low birth weight baby [None]
  - Pulmonary artery atresia [None]
